FAERS Safety Report 15884051 (Version 2)
Quarter: 2019Q2

REPORT INFORMATION
  Report Type: Spontaneous
  Country: US (occurrence: US)
  Receive Date: 20190129
  Receipt Date: 20190416
  Transmission Date: 20190711
  Serious: No
  Sender: FDA-Public Use
  Company Number: US-ORPHAN EUROPE-2061863

PATIENT
  Age: 9 Year
  Sex: Male
  Weight: 26.6 kg

DRUGS (4)
  1. FOLIC ACID. [Concomitant]
     Active Substance: FOLIC ACID
  2. L-CARNITINE [Concomitant]
     Active Substance: LEVOCARNITINE
  3. CYSTADANE [Suspect]
     Active Substance: BETAINE
     Route: 048
  4. CYSTADANE [Suspect]
     Active Substance: BETAINE
     Route: 048

REACTIONS (2)
  - Overdose [Not Recovered/Not Resolved]
  - Skin odour abnormal [Not Recovered/Not Resolved]

NARRATIVE: CASE EVENT DATE: 201809
